FAERS Safety Report 12839794 (Version 5)
Quarter: 2017Q1

REPORT INFORMATION
  Report Type: Spontaneous
  Country: US (occurrence: US)
  Receive Date: 20161012
  Receipt Date: 20170103
  Transmission Date: 20170428
  Serious: Yes (Hospitalization, Other)
  Sender: FDA-Public Use
  Company Number: US-PROCTER_AND_GAMBLE-GS16122716

PATIENT
  Age: 78 Year
  Sex: Female
  Weight: 66.67 kg

DRUGS (8)
  1. CALCIUM [Concomitant]
     Active Substance: CALCIUM
     Dosage: 500 MG, DAILY
     Route: 048
  2. FISH OIL [Concomitant]
     Active Substance: FISH OIL
     Indication: ROUTINE HEALTH MAINTENANCE
     Dosage: 1000 MG, DAILY
     Route: 048
  3. SECRET OUTLAST AND OLAY SMOOTH COMPLETELY CLEAN [Suspect]
     Active Substance: ALUMINUM ZIRCONIUM TRICHLOROHYDREX GLY
     Dosage: 1 APPLIC, 1 /DAY; USED 2 TIMES
     Route: 061
     Dates: start: 20160802, end: 20160803
  4. OCEAN CITY SUPPLEMENT [Concomitant]
  5. VITAMIN D3 [Concomitant]
     Active Substance: CHOLECALCIFEROL
     Indication: ROUTINE HEALTH MAINTENANCE
     Dosage: 2000 UNIT, DAILY
     Route: 048
  6. WOMEN 50+ MULTI-VITAMIN [Concomitant]
     Dosage: 1 TABLET, DAILY
     Route: 048
  7. LOSARTAN POTASSIUM. [Concomitant]
     Active Substance: LOSARTAN POTASSIUM
     Indication: HYPERTENSION
     Dosage: 50 MG, DAILY
     Route: 048
     Dates: start: 201503
  8. BAYER ASPIRIN REGIMEN [Concomitant]
     Indication: ISCHAEMIC HEART DISEASE PROPHYLAXIS
     Dosage: 81 MG, DAILY
     Route: 048

REACTIONS (42)
  - Anaphylactic shock [Recovered/Resolved]
  - Pharyngeal oedema [Recovered/Resolved]
  - Dysphagia [Recovered/Resolved]
  - Swollen tongue [Recovered/Resolved]
  - Skin irritation [Recovered/Resolved]
  - Soft tissue swelling [Recovered/Resolved]
  - Tachycardia [Recovered/Resolved]
  - Localised oedema [Recovered/Resolved]
  - Blood pressure diastolic decreased [Recovered/Resolved]
  - Lip swelling [Recovered/Resolved]
  - Urticaria [Recovered/Resolved]
  - Angioedema [Recovered/Resolved]
  - Anxiety [Recovered/Resolved]
  - White blood cell count increased [Recovered/Resolved]
  - Hypersensitivity [Recovered/Resolved]
  - Pruritus [Recovered/Resolved]
  - Tongue disorder [Recovered/Resolved]
  - Throat tightness [Recovered/Resolved]
  - Oxygen saturation decreased [Recovered/Resolved]
  - Enlarged uvula [Recovered/Resolved]
  - Eye swelling [Recovered/Resolved]
  - Erythema [Recovered/Resolved]
  - Periorbital oedema [Recovered/Resolved]
  - Lip oedema [Recovered/Resolved]
  - Rash erythematous [Recovered/Resolved]
  - Local swelling [Recovered/Resolved]
  - Skin swelling [Recovered/Resolved]
  - Blood pressure diastolic increased [Recovered/Resolved]
  - Eyelid oedema [Recovered/Resolved]
  - Macule [Recovered/Resolved]
  - Dyspnoea [Recovered/Resolved]
  - Idiopathic urticaria [Recovered/Resolved]
  - Rash [Recovered/Resolved]
  - Oropharyngeal swelling [Recovered/Resolved]
  - Skin lesion [Recovered/Resolved]
  - Anaphylactic reaction [Recovered/Resolved]
  - Rash pruritic [Recovered/Resolved]
  - Pruritus generalised [Recovered/Resolved]
  - Swelling face [Recovered/Resolved]
  - Dysphonia [Recovered/Resolved]
  - Heart rate increased [Recovered/Resolved]
  - Face oedema [Recovered/Resolved]

NARRATIVE: CASE EVENT DATE: 201608
